FAERS Safety Report 8554209-6 (Version None)
Quarter: 2012Q3

REPORT INFORMATION
  Report Type: 
  Country: None (occurrence: None)
  Receive Date: 20120731
  Receipt Date: 20120723
  Transmission Date: 20120928
  Serious: Yes (Other)
  Sender: FDA-Public Use
  Company Number: US-ELI_LILLY_AND_COMPANY-US201207006998

PATIENT
  Sex: Female
  Weight: 66.213 kg

DRUGS (7)
  1. LANTUS [Concomitant]
  2. METHOTREXATE [Concomitant]
     Dosage: UNK
  3. LIPITOR [Concomitant]
  4. LISINOPRIL [Concomitant]
  5. EFFIENT [Suspect]
     Indication: STENT PLACEMENT
     Dosage: 10 MG, UNK
  6. CARVEDILOL [Concomitant]
  7. HUMALOG [Concomitant]

REACTIONS (2)
  - DIZZINESS [None]
  - STENT PLACEMENT [None]
